FAERS Safety Report 9842059 (Version 7)
Quarter: 2014Q4

REPORT INFORMATION
  Report Type: Report from Study
  Country: KR (occurrence: KR)
  Receive Date: 20140124
  Receipt Date: 20141224
  Transmission Date: 20150529
  Serious: Yes (Death, Hospitalization)
  Sender: FDA-Public Use
  Company Number: 201400424

PATIENT
  Age: 37 Year
  Sex: Female
  Weight: 85 kg

DRUGS (5)
  1. LORAZEPAM. [Concomitant]
     Active Substance: LORAZEPAM
     Indication: ANXIETY
     Route: 048
     Dates: start: 20130809, end: 20140105
  2. SM-13496 [Suspect]
     Active Substance: LURASIDONE HYDROCHLORIDE
     Indication: SCHIZOPHRENIA
     Route: 048
     Dates: start: 20131206, end: 20140104
  3. BENZTROPINE [Concomitant]
     Active Substance: BENZTROPINE
     Indication: EXTRAPYRAMIDAL DISORDER
     Route: 048
     Dates: start: 20130905, end: 20140106
  4. SM-13496 [Suspect]
     Active Substance: LURASIDONE HYDROCHLORIDE
     Indication: SCHIZOPHRENIA
     Route: 048
     Dates: start: 20130927, end: 20131205
  5. TRIAZOLAM. [Concomitant]
     Active Substance: TRIAZOLAM
     Indication: INSOMNIA
     Dates: start: 20130905, end: 20140102

REACTIONS (7)
  - Hyponatraemia [Recovered/Resolved]
  - Seizure [Not Recovered/Not Resolved]
  - Blood hyposmosis [Recovered/Resolved]
  - Diabetes insipidus [Not Recovered/Not Resolved]
  - Pneumonia [Fatal]
  - Cystitis [Not Recovered/Not Resolved]
  - Septic shock [Fatal]

NARRATIVE: CASE EVENT DATE: 20140106
